FAERS Safety Report 9855862 (Version 1)
Quarter: 2014Q1

REPORT INFORMATION
  Report Type: Spontaneous
  Country: US (occurrence: US)
  Receive Date: 20140130
  Receipt Date: 20140130
  Transmission Date: 20141002
  Serious: Yes (Hospitalization, Other)
  Sender: FDA-Public Use
  Company Number: US-B.I. PHARMACEUTICALS,INC./RIDGEFIELD-2014-BI-03067BP

PATIENT
  Age: 75 Year
  Sex: Male

DRUGS (5)
  1. COMBIVENT [Suspect]
     Indication: EMPHYSEMA
     Dosage: STRENGTH: 18 MCG / 103 MCG;
     Route: 055
     Dates: start: 1996, end: 2011
  2. COMBIVENT [Suspect]
     Indication: EMPHYSEMA
     Dosage: DOSE PER APPLICATION: 20 MCG / 100 MCG; DAILY DOSE: 80 MCG / 400 MCG
     Route: 055
     Dates: start: 2011
  3. SPIRIVA [Suspect]
     Indication: EMPHYSEMA
     Dosage: 18 MCG
     Route: 055
     Dates: start: 2012
  4. SPIRIVA [Suspect]
     Dosage: 18 MCG
     Route: 048
     Dates: start: 20140115, end: 20140115
  5. SYMBICORT [Concomitant]
     Indication: EMPHYSEMA
     Dosage: 4 PUF
     Route: 055

REACTIONS (10)
  - Malignant melanoma [Recovered/Resolved]
  - Squamous cell carcinoma [Recovered/Resolved]
  - Lung neoplasm malignant [Not Recovered/Not Resolved]
  - Blast injury [Recovered/Resolved]
  - Burns third degree [Recovered/Resolved]
  - Oesophagitis [Not Recovered/Not Resolved]
  - Arrhythmia [Not Recovered/Not Resolved]
  - Dyspnoea [Recovered/Resolved]
  - Abnormal loss of weight [Not Recovered/Not Resolved]
  - Incorrect route of drug administration [Recovered/Resolved]
